FAERS Safety Report 10223050 (Version 1)
Quarter: 2014Q2

REPORT INFORMATION
  Report Type: Spontaneous
  Country: FR (occurrence: FR)
  Receive Date: 20140607
  Receipt Date: 20140607
  Transmission Date: 20141212
  Serious: Yes (Hospitalization)
  Sender: FDA-Public Use
  Company Number: PHHY2014FR066781

PATIENT
  Age: 64 Year
  Sex: Male

DRUGS (9)
  1. NEORAL [Suspect]
     Dosage: 150 MG, DAILY
     Route: 048
  2. CELLCEPT [Suspect]
     Dosage: 500 MG, QID
     Route: 048
  3. CORTANCYL [Suspect]
     Dosage: 5 MG, QD
     Route: 048
  4. LASILIX [Concomitant]
     Dosage: UNK UKN, UNK
  5. AMLOR [Concomitant]
     Dosage: UNK UKN, UNK
  6. TENORMINE [Concomitant]
     Dosage: UNK UKN, UNK
  7. EUPRESSYL [Concomitant]
     Dosage: UNK UKN, UNK
  8. TAHOR [Concomitant]
     Dosage: UNK UKN, UNK
  9. BACTRIM [Concomitant]
     Dosage: UNK UKN, UNK

REACTIONS (1)
  - Lung disorder [Recovered/Resolved]
